FAERS Safety Report 10026107 (Version 1)
Quarter: 2014Q1

REPORT INFORMATION
  Report Type: Spontaneous
  Country: GB (occurrence: GB)
  Receive Date: 20140320
  Receipt Date: 20140320
  Transmission Date: 20141002
  Serious: Yes (Other)
  Sender: FDA-Public Use
  Company Number: GB-TEVA-467908ISR

PATIENT
  Sex: Female

DRUGS (6)
  1. LANSOPRAZOLE [Suspect]
     Indication: OESOPHAGITIS
     Dosage: UNKNOWN/D
     Route: 048
     Dates: start: 201209
  2. VESICARE [Suspect]
     Indication: HYPERTONIC BLADDER
     Dosage: UNKNOWN/D
     Route: 048
     Dates: start: 201112, end: 201401
  3. AMITRIPTYLINE [Concomitant]
     Indication: FIBROMYALGIA
     Dosage: UNKNOWN/D
     Route: 048
     Dates: start: 201310
  4. BUPRENORPHINE [Concomitant]
     Indication: FIBROMYALGIA
     Dosage: UNKNOWN/D
     Route: 061
     Dates: start: 201310
  5. FLUOXETIN [Concomitant]
     Indication: DEPRESSION
     Route: 048
     Dates: start: 201310
  6. TRAMADOL [Concomitant]
     Indication: FIBROMYALGIA
     Dosage: UNKNOWN/D
     Route: 048
     Dates: start: 201310

REACTIONS (5)
  - Herpes zoster [Unknown]
  - Erythema multiforme [Not Recovered/Not Resolved]
  - Rash [Unknown]
  - Herpes simplex [Unknown]
  - Pruritus [Unknown]
